FAERS Safety Report 16788016 (Version 1)
Quarter: 2019Q3

REPORT INFORMATION
  Report Type: Spontaneous
  Country: DE (occurrence: DE)
  Receive Date: 20190909
  Receipt Date: 20190909
  Transmission Date: 20191005
  Serious: Yes (Disabling, Other)
  Sender: FDA-Public Use
  Company Number: PHHY2019DE196303

PATIENT
  Sex: Female
  Weight: 80 kg

DRUGS (2)
  1. LEVOFLOXACIN. [Suspect]
     Active Substance: LEVOFLOXACIN
     Indication: BRONCHITIS
     Dosage: 250 MG, (10 TABLETS)
     Route: 065
  2. LEVOFLOXACIN. [Suspect]
     Active Substance: LEVOFLOXACIN
     Dosage: 500 MG, (10 TABLETS)
     Route: 065

REACTIONS (14)
  - Mucosal dryness [Unknown]
  - Tendon pain [Unknown]
  - Tendonitis [Unknown]
  - Tinnitus [Unknown]
  - Rotator cuff syndrome [Unknown]
  - Visual impairment [Unknown]
  - Panic attack [Unknown]
  - Impaired work ability [Unknown]
  - Extrasystoles [Unknown]
  - Neuralgia [Unknown]
  - Tachycardia [Unknown]
  - Gait disturbance [Unknown]
  - Dry skin [Unknown]
  - Myalgia [Unknown]

NARRATIVE: CASE EVENT DATE: 20161110
